FAERS Safety Report 4486196-4 (Version None)
Quarter: 2004Q4

REPORT INFORMATION
  Report Type: 
  Country: None (occurrence: None)
  Receive Date: 20041026
  Receipt Date: 20041021
  Transmission Date: 20050328
  Serious: Yes (Life-Threatening, Hospitalization, Disabling)
  Sender: FDA-Public Use
  Company Number: US-MERCK-0410USA03481B1

PATIENT
  Sex: Female

DRUGS (2)
  1. VIOXX [Suspect]
     Indication: RHEUMATOID ARTHRITIS
     Dates: end: 20040930
  2. [THERAPY UNSPECIFIED] [Concomitant]

REACTIONS (9)
  - ABNORMAL LABOUR [None]
  - BRAIN DAMAGE [None]
  - CARDIAC DISORDER [None]
  - COMPLICATION OF DELIVERY [None]
  - CONGENITAL BRAIN DAMAGE [None]
  - DRUG EXPOSURE DURING PREGNANCY [None]
  - PREGNANCY [None]
  - PULMONARY EMBOLISM [None]
  - RESPIRATORY DISORDER [None]
